FAERS Safety Report 9776125 (Version 1)
Quarter: 2013Q4

REPORT INFORMATION
  Report Type: Spontaneous
  Country: AU (occurrence: AU)
  Receive Date: 20131220
  Receipt Date: 20131220
  Transmission Date: 20140711
  Serious: Yes (Other)
  Sender: FDA-Public Use
  Company Number: AU-ABBVIE-13P-008-1181119-00

PATIENT
  Age: 40 Year
  Sex: Male

DRUGS (4)
  1. KALETRA [Suspect]
     Indication: HIV INFECTION
     Dosage: 100/200MG
  2. FLUTICASONE [Interacting]
     Indication: ASTHMA
     Route: 055
  3. STAVUDINE [Concomitant]
     Indication: HIV INFECTION
  4. ABACAVIR [Concomitant]
     Indication: HIV INFECTION

REACTIONS (10)
  - Osteonecrosis [Unknown]
  - Arthralgia [Unknown]
  - Swelling [Unknown]
  - Oedema [Unknown]
  - Muscle atrophy [Unknown]
  - Arthralgia [Unknown]
  - Cushing^s syndrome [Unknown]
  - Adrenal insufficiency [Unknown]
  - Drug interaction [Unknown]
  - Cushingoid [Unknown]
